FAERS Safety Report 23370076 (Version 2)
Quarter: 2024Q1

REPORT INFORMATION
  Report Type: Spontaneous
  Country: DE (occurrence: DE)
  Receive Date: 20240105
  Receipt Date: 20240320
  Transmission Date: 20240410
  Serious: Yes (Other)
  Sender: FDA-Public Use
  Company Number: None

PATIENT
  Age: 34 Year
  Sex: Female
  Weight: 120 kg

DRUGS (3)
  1. CITALOPRAM [Interacting]
     Active Substance: CITALOPRAM\CITALOPRAM HYDROBROMIDE
     Indication: Depression
     Dosage: 1-0-0, LONG-TERM MEDICATION
     Route: 048
  2. CEFUROXIME AXETIL [Interacting]
     Active Substance: CEFUROXIME AXETIL
     Indication: Respiratory tract infection
     Dosage: ONLY 2 PIECES TAKEN / INGESTED
     Route: 048
     Dates: start: 20180523, end: 20180523
  3. PANTOPRAZOLE SODIUM [Concomitant]
     Active Substance: PANTOPRAZOLE SODIUM
     Indication: Gastritis prophylaxis
     Dosage: 1-0-0
     Route: 048
     Dates: start: 201805

REACTIONS (5)
  - Anxiety [Recovered/Resolved]
  - Panic attack [Recovered/Resolved]
  - Hallucination, visual [Recovered/Resolved]
  - Palpitations [Recovered/Resolved]
  - Drug interaction [Recovered/Resolved]

NARRATIVE: CASE EVENT DATE: 20180523
